FAERS Safety Report 23201615 (Version 2)
Quarter: 2023Q4

REPORT INFORMATION
  Report Type: Spontaneous
  Country: JP (occurrence: JP)
  Receive Date: 20231118
  Receipt Date: 20231201
  Transmission Date: 20240110
  Serious: Yes (Other)
  Sender: FDA-Public Use
  Company Number: JP-LUNDBECK-DKLU2043495

PATIENT
  Age: 4 Year
  Sex: Female
  Weight: 16 kg

DRUGS (16)
  1. SABRIL [Suspect]
     Active Substance: VIGABATRIN
     Indication: Infantile spasms
     Dosage: 750 MG, BID
     Route: 048
     Dates: start: 20170629, end: 20170705
  2. SABRIL [Suspect]
     Active Substance: VIGABATRIN
     Dosage: STOP DATE: 2017
     Route: 048
     Dates: start: 20170217
  3. SABRIL [Suspect]
     Active Substance: VIGABATRIN
     Dosage: 375 MG, BID
     Route: 048
     Dates: start: 20170403, end: 20170406
  4. SABRIL [Suspect]
     Active Substance: VIGABATRIN
     Dosage: 562.5 MG, BID
     Route: 048
     Dates: start: 20170407, end: 20170410
  5. SABRIL [Suspect]
     Active Substance: VIGABATRIN
     Dosage: 750 MG, BID
     Route: 048
     Dates: start: 20170411, end: 20170413
  6. SABRIL [Suspect]
     Active Substance: VIGABATRIN
     Dosage: 937.5 MG, BID
     Route: 048
     Dates: start: 20170414, end: 20170417
  7. SABRIL [Suspect]
     Active Substance: VIGABATRIN
     Dosage: 1125 MG, BID
     Route: 048
     Dates: start: 20170418, end: 20170628
  8. SABRIL [Suspect]
     Active Substance: VIGABATRIN
     Dosage: 375 MG, BID
     Route: 048
     Dates: start: 20170706, end: 20170713
  9. LEVETIRACETAM [Concomitant]
     Active Substance: LEVETIRACETAM
     Indication: Product used for unknown indication
     Dosage: 800 MG, QD
     Route: 048
  10. LEVETIRACETAM [Concomitant]
     Active Substance: LEVETIRACETAM
     Dosage: 39 MG, QD
     Route: 048
  11. TOPIRAMATE [Concomitant]
     Active Substance: TOPIRAMATE
     Indication: Product used for unknown indication
     Dosage: 120 MG, QD
     Route: 065
  12. MAGNESIUM OXIDE [Concomitant]
     Active Substance: MAGNESIUM OXIDE
     Indication: Product used for unknown indication
     Dosage: 500 MG, QD
     Route: 048
  13. DL-METHIONINE;GLYCYRRHIZIC ACID [Concomitant]
     Indication: Product used for unknown indication
     Dosage: 37.5 MG, QD
     Route: 048
  14. BACLOFEN [Concomitant]
     Active Substance: BACLOFEN
     Indication: Product used for unknown indication
     Dosage: 1.5 MG, QD
     Route: 048
  15. FOSFOMYCIN CALCIUM [Concomitant]
     Active Substance: FOSFOMYCIN CALCIUM
     Indication: Product used for unknown indication
     Dosage: 150 MG, QD
     Route: 048
  16. CLARITHROMYCIN [Concomitant]
     Active Substance: CLARITHROMYCIN
     Indication: Product used for unknown indication
     Dosage: 60 MG, QD
     Route: 048

REACTIONS (4)
  - Pneumonia [Recovered/Resolved]
  - Retinogram abnormal [Recovered/Resolved]
  - Physical deconditioning [Unknown]
  - Drug ineffective [Unknown]

NARRATIVE: CASE EVENT DATE: 20170629
